FAERS Safety Report 17694509 (Version 1)
Quarter: 2020Q2

REPORT INFORMATION
  Report Type: Report from Study
  Country: None (occurrence: CO)
  Receive Date: 20200422
  Receipt Date: 20200422
  Transmission Date: 20200714
  Serious: Yes (Other)
  Sender: FDA-Public Use
  Company Number: CO-ABBVIE-20K-036-3373494-00

PATIENT
  Age: 48 Year
  Sex: Male
  Weight: 85 kg

DRUGS (2)
  1. HUMIRA [Suspect]
     Active Substance: ADALIMUMAB
     Indication: PSORIASIS
     Route: 058
     Dates: start: 20100810
  2. HUMIRA [Suspect]
     Active Substance: ADALIMUMAB
     Indication: PSORIASIS
     Route: 058

REACTIONS (5)
  - Drowning [Recovered/Resolved]
  - Brain stem syndrome [Recovered/Resolved]
  - Scoliosis [Recovered/Resolved]
  - Blood triglycerides increased [Recovered/Resolved]
  - Blood cholesterol increased [Recovered/Resolved]

NARRATIVE: CASE EVENT DATE: 201008
